FAERS Safety Report 12647761 (Version 2)
Quarter: 2016Q3

REPORT INFORMATION
  Report Type: Report from Study
  Country: US (occurrence: US)
  Receive Date: 20160812
  Receipt Date: 20160817
  Transmission Date: 20161109
  Serious: Yes (Other)
  Sender: FDA-Public Use
  Company Number: PHEH2016US020099

PATIENT
  Sex: Female

DRUGS (2)
  1. AFINITOR [Suspect]
     Active Substance: EVEROLIMUS
     Indication: PRODUCT USED FOR UNKNOWN INDICATION
     Dosage: 2.5 MG, UNK
     Route: 065
  2. AFINITOR [Suspect]
     Active Substance: EVEROLIMUS
     Dosage: 5 MG, UNK
     Route: 065

REACTIONS (8)
  - Constipation [Unknown]
  - Faecaloma [Unknown]
  - Hepatic neoplasm [Unknown]
  - Blood glucose increased [Unknown]
  - Abnormal faeces [Unknown]
  - Drug effect incomplete [Unknown]
  - Pancreatic neoplasm [Unknown]
  - Stomatitis [Unknown]
